FAERS Safety Report 25419111 (Version 3)
Quarter: 2025Q3

REPORT INFORMATION
  Report Type: Report from Study
  Country: KR (occurrence: KR)
  Receive Date: 20250610
  Receipt Date: 20250810
  Transmission Date: 20251020
  Serious: Yes (Other)
  Sender: ALEXION PHARMACEUTICALS
  Company Number: KR-ASTRAZENECA-202410GLO009175KR

PATIENT
  Sex: Female
  Weight: 45.8 kg

DRUGS (9)
  1. OLAPARIB [Suspect]
     Active Substance: OLAPARIB
     Indication: Ovarian cancer
     Dosage: 300 MILLIGRAM, BID
     Dates: start: 20240725, end: 20240808
  2. OLAPARIB [Suspect]
     Active Substance: OLAPARIB
     Dosage: 250 MILLIGRAM, BID
     Dates: start: 20240816, end: 20240821
  3. OLAPARIB [Suspect]
     Active Substance: OLAPARIB
     Dosage: 200 MILLIGRAM, BID
     Dates: start: 20240829, end: 20241024
  4. OLAPARIB [Suspect]
     Active Substance: OLAPARIB
     Dosage: 150 MILLIGRAM, BID
     Dates: start: 20241025
  5. SANCUSO [Concomitant]
     Active Substance: GRANISETRON
     Indication: Prophylaxis
     Route: 065
  6. GASTER [Concomitant]
     Active Substance: FAMOTIDINE
     Indication: Prophylaxis
     Route: 065
  7. METOCLOPRAMIDE HYDROCHLORIDE [Concomitant]
     Active Substance: METOCLOPRAMIDE HYDROCHLORIDE
     Indication: Prophylaxis
     Route: 065
  8. ULTRACET [Concomitant]
     Active Substance: ACETAMINOPHEN\TRAMADOL HYDROCHLORIDE
     Indication: Prophylaxis
     Route: 065
  9. KYTRIL [Concomitant]
     Active Substance: GRANISETRON HYDROCHLORIDE
     Route: 065

REACTIONS (4)
  - Neuropathy peripheral [Recovered/Resolved]
  - Pollakiuria [Recovered/Resolved]
  - Nausea [Recovering/Resolving]
  - Asthenia [Recovering/Resolving]

NARRATIVE: CASE EVENT DATE: 20240809
